FAERS Safety Report 7102040-0 (Version None)
Quarter: 2010Q4

REPORT INFORMATION
  Report Type: 
  Country: None (occurrence: None)
  Receive Date: 20101115
  Receipt Date: 20101101
  Transmission Date: 20110411
  Serious: Yes (Other)
  Sender: FDA-Public Use
  Company Number: US-ROCHE-718996

PATIENT
  Sex: Male
  Weight: 83.9 kg

DRUGS (5)
  1. ACCUTANE [Suspect]
     Indication: ACNE
     Route: 048
     Dates: start: 19940425, end: 19940509
  2. ACCUTANE [Suspect]
     Route: 048
     Dates: start: 19940510, end: 19941201
  3. ACCUTANE [Suspect]
     Route: 048
     Dates: start: 20030529, end: 20031001
  4. TYLENOL [Concomitant]
     Indication: HEADACHE
     Dosage: OTHER INDICATION- ACHES, RARELY USED
  5. SUDAFED 12 HOUR [Concomitant]
     Indication: SINUS CONGESTION
     Dosage: AS NEEDED

REACTIONS (15)
  - ACROCHORDON [None]
  - BLOOD CHOLESTEROL INCREASED [None]
  - BLOOD TRIGLYCERIDES INCREASED [None]
  - COLITIS ULCERATIVE [None]
  - DEPRESSION [None]
  - FATIGUE [None]
  - GASTROINTESTINAL INJURY [None]
  - HEADACHE [None]
  - INFLAMMATORY BOWEL DISEASE [None]
  - PRURIGO [None]
  - SEBORRHOEIC KERATOSIS [None]
  - SKIN IRRITATION [None]
  - SKIN PAPILLOMA [None]
  - SUICIDAL IDEATION [None]
  - XEROSIS [None]
